FAERS Safety Report 17392016 (Version 2)
Quarter: 2020Q1

REPORT INFORMATION
  Report Type: Spontaneous
  Country: AU (occurrence: AU)
  Receive Date: 20200207
  Receipt Date: 20200218
  Transmission Date: 20200409
  Serious: Yes (Other)
  Sender: FDA-Public Use
  Company Number: AU-GE HEALTHCARE LIFE SCIENCES-2020CSU000544

PATIENT

DRUGS (3)
  1. SALINE [Concomitant]
     Active Substance: SODIUM CHLORIDE
     Dosage: 40 ML, UNK
     Route: 042
     Dates: start: 20200131, end: 20200131
  2. OMNIPAQUE [Suspect]
     Active Substance: IOHEXOL
     Indication: COMPUTERISED TOMOGRAM SPINE
     Dosage: 65 ML, SINGLE
     Route: 042
     Dates: start: 20200131, end: 20200131
  3. OMNIPAQUE [Suspect]
     Active Substance: IOHEXOL
     Indication: VERTEBRAL ARTERY STENOSIS

REACTIONS (3)
  - Dizziness [Recovered/Resolved]
  - Rhinorrhoea [Recovered/Resolved]
  - Sneezing [Recovered/Resolved]

NARRATIVE: CASE EVENT DATE: 20200131
